FAERS Safety Report 5719674-8 (Version None)
Quarter: 2008Q2

REPORT INFORMATION
  Report Type: 
  Country: None (occurrence: None)
  Receive Date: 20080428
  Receipt Date: 20080423
  Transmission Date: 20081010
  Serious: Yes (Death, Hospitalization)
  Sender: FDA-Public Use
  Company Number: PHNU2007DE03842

PATIENT
  Sex: Male
  Weight: 68 kg

DRUGS (3)
  1. EXJADE [Suspect]
     Indication: HAEMOSIDEROSIS
     Dosage: 1500 MG, QD
     Route: 048
     Dates: end: 20071029
  2. EXJADE [Suspect]
     Route: 048
     Dates: start: 20061001
  3. ASCORBIC ACID [Concomitant]
     Dosage: 100 MG, QD
     Dates: start: 20061001

REACTIONS (7)
  - MULTI-ORGAN FAILURE [None]
  - PERICARDIAL EFFUSION [None]
  - PERICARDITIS [None]
  - PLEURAL EFFUSION [None]
  - PLEURISY [None]
  - POLYSEROSITIS [None]
  - SEPSIS [None]
